FAERS Safety Report 5857394-X (Version None)
Quarter: 2008Q3

REPORT INFORMATION
  Report Type: 
  Country: None (occurrence: None)
  Receive Date: 20080825
  Receipt Date: 20080825
  Transmission Date: 20090109
  Serious: Yes (Other)
  Sender: FDA-Public Use
  Company Number: None

PATIENT
  Sex: Female

DRUGS (1)
  1. AMLODIPINE BESYLATE [Suspect]
     Indication: HYPERTENSION
     Dosage: 2.5   ONE TABLET DAILY  PO (DURATION: PATIENT USED GENERIC MEDICATION FOR A LITTLE MORE THAN 1 MONTH
     Route: 048

REACTIONS (2)
  - OEDEMA PERIPHERAL [None]
  - THERAPEUTIC RESPONSE UNEXPECTED WITH DRUG SUBSTITUTION [None]
